FAERS Safety Report 13538294 (Version 2)
Quarter: 2017Q2

REPORT INFORMATION
  Report Type: Report from Study
  Country: None (occurrence: ES)
  Receive Date: 20170512
  Receipt Date: 20170525
  Transmission Date: 20170830
  Serious: Yes (Death)
  Sender: FDA-Public Use
  Company Number: ES-ABBVIE-17K-144-1972798-00

PATIENT
  Age: 77 Year
  Sex: Female

DRUGS (1)
  1. DUODOPA [Suspect]
     Active Substance: CARBIDOPA\LEVODOPA
     Indication: PARKINSON^S DISEASE
     Route: 050
     Dates: start: 20080311

REACTIONS (5)
  - Cardiac arrest [Fatal]
  - Pallor [Fatal]
  - Feeling abnormal [Unknown]
  - Coronary artery occlusion [Fatal]
  - Malaise [Fatal]

NARRATIVE: CASE EVENT DATE: 20170506
